FAERS Safety Report 17693253 (Version 1)
Quarter: 2020Q2

REPORT INFORMATION
  Report Type: Spontaneous
  Country: US (occurrence: US)
  Receive Date: 20200422
  Receipt Date: 20200422
  Transmission Date: 20200714
  Serious: Yes (Hospitalization)
  Sender: FDA-Public Use
  Company Number: None

PATIENT
  Age: 60 Year
  Sex: Female
  Weight: 81 kg

DRUGS (10)
  1. LOSARTAN. [Concomitant]
     Active Substance: LOSARTAN
  2. GLIMEPIRIDE. [Concomitant]
     Active Substance: GLIMEPIRIDE
  3. TEMAZEPAM. [Concomitant]
     Active Substance: TEMAZEPAM
  4. TYLENOL [Concomitant]
     Active Substance: ACETAMINOPHEN
  5. ZONISAMIDE. [Concomitant]
     Active Substance: ZONISAMIDE
  6. BUTALBITAL APAP CAFFEINE [Concomitant]
     Active Substance: ACETAMINOPHEN\BUTALBITAL\CAFFEINE
  7. ASPIRIN. [Concomitant]
     Active Substance: ASPIRIN
  8. CLONIDINE. [Concomitant]
     Active Substance: CLONIDINE
  9. IBUPROFEN. [Concomitant]
     Active Substance: IBUPROFEN
  10. BUPRENORPHINE AND NALOXONE [Suspect]
     Active Substance: BUPRENORPHINE HYDROCHLORIDE\NALOXONE HYDROCHLORIDE
     Indication: MIGRAINE
     Dosage: ?          QUANTITY:1 FILM;?
     Route: 060
     Dates: start: 20190619, end: 20200110

REACTIONS (3)
  - Syncope [None]
  - Headache [None]
  - Road traffic accident [None]

NARRATIVE: CASE EVENT DATE: 20190719
